FAERS Safety Report 11639505 (Version 1)
Quarter: 2015Q4

REPORT INFORMATION
  Report Type: Spontaneous
  Country: IL (occurrence: IL)
  Receive Date: 20151019
  Receipt Date: 20151019
  Transmission Date: 20160304
  Serious: Yes (Other)
  Sender: FDA-Public Use
  Company Number: IL-ACTELION-A-CH2015-122810

PATIENT
  Age: 78 Year
  Sex: Female

DRUGS (2)
  1. REVATIO [Concomitant]
     Active Substance: SILDENAFIL CITRATE
     Indication: PULMONARY ARTERIAL HYPERTENSION
     Route: 048
  2. OPSUMIT [Suspect]
     Active Substance: MACITENTAN
     Indication: PULMONARY ARTERIAL HYPERTENSION
     Dosage: 10 MG, QD
     Route: 048
     Dates: start: 20150809, end: 20150819

REACTIONS (6)
  - Erythema [Unknown]
  - Rash [Unknown]
  - Skin discolouration [Unknown]
  - Cryoglobulinaemia [Unknown]
  - Hepatitis C [Unknown]
  - Dry skin [Unknown]

NARRATIVE: CASE EVENT DATE: 20150818
